FAERS Safety Report 8977071 (Version 1)
Quarter: 2012Q4

REPORT INFORMATION
  Report Type: 
  Country: PL (occurrence: PL)
  Receive Date: 20121220
  Receipt Date: 20121220
  Transmission Date: 20130627
  Serious: Yes (Life-Threatening, Hospitalization)
  Sender: FDA-Public Use
  Company Number: PL-BAXTER-2012BAX027538

PATIENT
  Age: 54 Year
  Sex: Female
  Weight: 66 kg

DRUGS (1)
  1. KIOVIG [Suspect]
     Indication: COMMON VARIABLE IMMUNODEFICIENCY
     Route: 042

REACTIONS (4)
  - Dyspnoea [Recovered/Resolved]
  - Laryngospasm [Recovered/Resolved]
  - Swelling face [Recovered/Resolved]
  - Serum sickness [Recovered/Resolved]
